FAERS Safety Report 19794470 (Version 2)
Quarter: 2022Q1

REPORT INFORMATION
  Report Type: Spontaneous
  Country: GB (occurrence: GB)
  Receive Date: 20210906
  Receipt Date: 20220331
  Transmission Date: 20220423
  Serious: Yes (Life-Threatening, Hospitalization)
  Sender: FDA-Public Use
  Company Number: None

PATIENT
  Age: 21 Year
  Sex: Male

DRUGS (1)
  1. LOPERAMIDE HYDROCHLORIDE [Suspect]
     Active Substance: LOPERAMIDE HYDROCHLORIDE
     Indication: Diarrhoea
     Dosage: 6 GRAM DAILY;
     Route: 048
     Dates: start: 20210725, end: 20210726

REACTIONS (6)
  - Syncope [Unknown]
  - Medication error [Unknown]
  - Hypersensitivity [Unknown]
  - Respiratory arrest [Unknown]
  - Circulatory collapse [Unknown]
  - Loss of consciousness [Unknown]

NARRATIVE: CASE EVENT DATE: 20210726
